FAERS Safety Report 14201684 (Version 1)
Quarter: 2017Q4

REPORT INFORMATION
  Report Type: Spontaneous
  Country: US (occurrence: US)
  Receive Date: 20171117
  Receipt Date: 20171117
  Transmission Date: 20180321
  Serious: Yes (Hospitalization)
  Sender: FDA-Public Use
  Company Number: PHHY2017US158008

PATIENT
  Age: 16 Year
  Sex: Female

DRUGS (3)
  1. NEFAZODONE [Concomitant]
     Active Substance: NEFAZODONE
     Indication: BIPOLAR DISORDER
     Route: 065
  2. OLANZAPINE. [Concomitant]
     Active Substance: OLANZAPINE
     Indication: BIPOLAR DISORDER
     Route: 065
  3. VALPROIC ACID SANDOZ [Suspect]
     Active Substance: VALPROIC ACID
     Indication: PRODUCT USED FOR UNKNOWN INDICATION
     Dosage: 20 DF, UNK
     Route: 065

REACTIONS (1)
  - Intentional overdose [Recovering/Resolving]
